FAERS Safety Report 13486251 (Version 2)
Quarter: 2017Q2

REPORT INFORMATION
  Report Type: Spontaneous
  Country: JP (occurrence: JP)
  Receive Date: 20170426
  Receipt Date: 20170522
  Transmission Date: 20170830
  Serious: Yes (Other)
  Sender: FDA-Public Use
  Company Number: JP-SA-2017SA074453

PATIENT
  Age: 81 Year
  Sex: Male

DRUGS (3)
  1. VILDAGLIPTIN [Suspect]
     Active Substance: VILDAGLIPTIN
     Route: 065
  2. GLIMEPIRIDE. [Suspect]
     Active Substance: GLIMEPIRIDE
     Route: 065
  3. MIGLITOL. [Suspect]
     Active Substance: MIGLITOL
     Route: 065

REACTIONS (1)
  - Erythema multiforme [Unknown]
